FAERS Safety Report 6902710-0 (Version None)
Quarter: 2010Q3

REPORT INFORMATION
  Report Type: 
  Country: None (occurrence: None)
  Receive Date: 20100803
  Receipt Date: 20080623
  Transmission Date: 20110219
  Serious: No
  Sender: FDA-Public Use
  Company Number: US-PFIZER INC-2008053533

PATIENT
  Sex: Female
  Weight: 81.6 kg

DRUGS (5)
  1. LYRICA [Suspect]
     Indication: SCIATICA
     Dosage: 100MG TID EVERY DAY TDD:300MG
  2. LYRICA [Suspect]
     Indication: FIBROMYALGIA
  3. FLEXERIL [Concomitant]
  4. METHADONE HCL [Concomitant]
  5. ALL OTHER THERAPEUTIC PRODUCTS [Concomitant]

REACTIONS (3)
  - BLOOD CHOLESTEROL ABNORMAL [None]
  - OEDEMA PERIPHERAL [None]
  - SKIN DISCOLOURATION [None]
